FAERS Safety Report 8860637 (Version 1)
Quarter: 2012Q4

REPORT INFORMATION
  Report Type: 
  Country: US (occurrence: US)
  Receive Date: 20121025
  Receipt Date: 20121025
  Transmission Date: 20130627
  Serious: No
  Sender: FDA-Public Use
  Company Number: US-ASTRAZENECA-2011SE70882

PATIENT
  Age: 58 Year
  Sex: Male
  Weight: 96.6 kg

DRUGS (5)
  1. NEXIUM [Suspect]
     Route: 048
  2. CRESTOR [Suspect]
     Indication: HYPERTENSION
     Route: 048
  3. CRESTOR [Suspect]
     Indication: BLOOD CHOLESTEROL INCREASED
     Route: 048
  4. TRIDENCOR [Concomitant]
  5. ASPIRIN [Concomitant]

REACTIONS (1)
  - Hypoaesthesia [Unknown]
